FAERS Safety Report 11507760 (Version 1)
Quarter: 2015Q3

REPORT INFORMATION
  Report Type: Spontaneous
  Country: US (occurrence: None)
  Receive Date: 20150914
  Receipt Date: 20150914
  Transmission Date: 20151125
  Serious: Yes (Hospitalization, Disabling, Other)
  Sender: FDA-Public Use
  Company Number: None

PATIENT
  Age: 51 Year
  Sex: Female
  Weight: 53.98 kg

DRUGS (7)
  1. ACIDOPHILOUS [Concomitant]
     Active Substance: LACTOBACILLUS ACIDOPHILUS
  2. ZOFRAN [Concomitant]
     Active Substance: ONDANSETRON HYDROCHLORIDE
  3. COMBIVENT [Concomitant]
     Active Substance: ALBUTEROL SULFATE\IPRATROPIUM BROMIDE
  4. CLINDAMYCIN [Suspect]
     Active Substance: CLINDAMYCIN\CLINDAMYCIN PHOSPHATE
     Dosage: 2  TWICE DAILY TAKEN BY MOUTH
     Route: 048
  5. LORAZAPAM [Concomitant]
     Active Substance: LORAZEPAM
  6. SALINE NOSE DROPS [Concomitant]
  7. PREMARIN CREAM [Concomitant]

REACTIONS (8)
  - Decreased activity [None]
  - Irritable bowel syndrome [None]
  - Clostridium difficile colitis [None]
  - Fear [None]
  - Arthritis [None]
  - Anxiety [None]
  - Fatigue [None]
  - Impaired work ability [None]

NARRATIVE: CASE EVENT DATE: 20111111
